FAERS Safety Report 21996061 (Version 1)
Quarter: 2023Q1

REPORT INFORMATION
  Report Type: Spontaneous
  Country: US (occurrence: US)
  Receive Date: 20230215
  Receipt Date: 20230215
  Transmission Date: 20230418
  Serious: Yes (Hospitalization)
  Sender: FDA-Public Use
  Company Number: US-ENDO PHARMACEUTICALS INC-2023-000837

PATIENT
  Age: 29 Year
  Sex: Female

DRUGS (1)
  1. IBUPROFEN [Suspect]
     Active Substance: IBUPROFEN
     Indication: Product used for unknown indication
     Dosage: UNK UNKNOWN, UNKNOWN (APPROXIMATELY 300 TABLETS) (APPROXIMATELY 60,000 MG IN TOTAL)
     Route: 065

REACTIONS (4)
  - Suicide attempt [Unknown]
  - Drug-induced liver injury [Recovering/Resolving]
  - Mental status changes [Recovered/Resolved]
  - Intentional overdose [Unknown]
